FAERS Safety Report 26115628 (Version 1)
Quarter: 2025Q4

REPORT INFORMATION
  Report Type: Spontaneous
  Country: TH (occurrence: TH)
  Receive Date: 20251203
  Receipt Date: 20251203
  Transmission Date: 20260118
  Serious: Yes (Death, Hospitalization, Other)
  Sender: Kenvue
  Company Number: TH-KENVUE-20251109733

PATIENT
  Age: 22 Year

DRUGS (4)
  1. ACETAMINOPHEN [Suspect]
     Active Substance: ACETAMINOPHEN
     Indication: Product used for unknown indication
     Dosage: 40 GRAM
  2. HERBALS\MITRAGYNINE [Suspect]
     Active Substance: HERBALS\MITRAGYNINE
     Indication: Product used for unknown indication
     Dosage: 1 LITER
  3. HERBALS\MITRAGYNINE [Suspect]
     Active Substance: HERBALS\MITRAGYNINE
     Dosage: USING SINCE SEVEN-YEARS
     Route: 065
  4. METHADONE [Concomitant]
     Active Substance: METHADONE HYDROCHLORIDE
     Indication: Withdrawal syndrome
     Dosage: UNK
     Route: 065

REACTIONS (9)
  - Acute hepatic failure [Fatal]
  - Methaemoglobinaemia [Fatal]
  - Haemolysis [Fatal]
  - Renal impairment [Fatal]
  - Coma [Fatal]
  - Brain oedema [Fatal]
  - Brain herniation [Fatal]
  - Glucose-6-phosphate dehydrogenase deficiency [Fatal]
  - Overdose [Fatal]
